FAERS Safety Report 7598434-X (Version None)
Quarter: 2011Q3

REPORT INFORMATION
  Report Type: 
  Country: None (occurrence: None)
  Receive Date: 20110708
  Receipt Date: 20110629
  Transmission Date: 20111222
  Serious: Yes (Disabling, Other)
  Sender: FDA-Public Use
  Company Number: US-MERCK-0807USA04945

PATIENT
  Age: 45 Year
  Sex: Female
  Weight: 53 kg

DRUGS (4)
  1. FOSAMAX [Suspect]
     Indication: OSTEOPOROSIS
     Route: 048
     Dates: start: 19980601
  2. FOSAMAX [Suspect]
     Route: 048
     Dates: start: 20040701, end: 20060701
  3. FOSAMAX [Suspect]
     Route: 048
     Dates: start: 20040701, end: 20060701
  4. FOSAMAX [Suspect]
     Indication: OSTEOPENIA
     Route: 048
     Dates: start: 19980601

REACTIONS (25)
  - BURSITIS [None]
  - RHINITIS ALLERGIC [None]
  - PALPITATIONS [None]
  - ORAL TORUS [None]
  - GASTROOESOPHAGEAL REFLUX DISEASE [None]
  - TOOTHACHE [None]
  - DENTAL CARIES [None]
  - NEUTROPENIA [None]
  - LIGAMENT SPRAIN [None]
  - PHARYNGITIS [None]
  - ECZEMA [None]
  - OSTEOMYELITIS [None]
  - TOOTH DISORDER [None]
  - JAW DISORDER [None]
  - NIPPLE EXUDATE BLOODY [None]
  - HYPERSENSITIVITY [None]
  - CYSTITIS [None]
  - UPPER RESPIRATORY TRACT INFECTION [None]
  - OSTEONECROSIS OF JAW [None]
  - ASTHMA [None]
  - CONJUNCTIVITIS [None]
  - URTICARIA [None]
  - TOOTH ABSCESS [None]
  - MELANOCYTIC NAEVUS [None]
  - HEADACHE [None]
